FAERS Safety Report 10055222 (Version 2)
Quarter: 2014Q2

REPORT INFORMATION
  Report Type: Report from Study
  Country: FR (occurrence: FR)
  Receive Date: 20140403
  Receipt Date: 20140507
  Transmission Date: 20141212
  Serious: Yes (Other)
  Sender: FDA-Public Use
  Company Number: FR-AMGEN-FRACT2014022049

PATIENT
  Age: 75 Year
  Sex: Female
  Weight: 70 kg

DRUGS (4)
  1. PANITUMUMAB [Suspect]
     Indication: OESOPHAGEAL ADENOCARCINOMA
     Dosage: 300 MG, UNK
     Route: 042
     Dates: start: 20130319
  2. OXALIPLATIN [Concomitant]
     Dosage: MG
     Route: 042
     Dates: start: 20130319
  3. FLUOROURACIL [Concomitant]
     Dosage: 4350 MG, UNK
     Route: 042
     Dates: start: 20130319
  4. LEVOFOLINATE [Concomitant]
     Dosage: 366 MG, UNK
     Route: 042
     Dates: start: 20130319

REACTIONS (1)
  - Neutropenia [Recovered/Resolved]
